FAERS Safety Report 18382295 (Version 1)
Quarter: 2020Q4

REPORT INFORMATION
  Report Type: Report from Study
  Country: IT (occurrence: IT)
  Receive Date: 20201014
  Receipt Date: 20201014
  Transmission Date: 20210114
  Serious: Yes (Other)
  Sender: FDA-Public Use
  Company Number: IT-PFIZER INC-2020397118

PATIENT
  Age: 72 Year
  Sex: Male

DRUGS (6)
  1. CARVEDILOL. [Concomitant]
     Active Substance: CARVEDILOL
     Dosage: UNK
  2. LASIX [Suspect]
     Active Substance: FUROSEMIDE
     Dosage: 250 MG, 1X/DAY
     Route: 048
     Dates: start: 20200101, end: 20200303
  3. PANTOPRAZOLE [Suspect]
     Active Substance: PANTOPRAZOLE
     Dosage: UNK
     Route: 065
     Dates: start: 20200101, end: 20200303
  4. COUMADIN [Concomitant]
     Active Substance: WARFARIN SODIUM
     Dosage: UNK
  5. LUVION [CANRENOIC ACID] [Concomitant]
     Active Substance: CANRENOIC ACID
     Dosage: UNK
  6. LANOXIN [Concomitant]
     Active Substance: DIGOXIN
     Dosage: UNK

REACTIONS (1)
  - Hypokalaemia [Recovering/Resolving]

NARRATIVE: CASE EVENT DATE: 20200303
